FAERS Safety Report 20280013 (Version 6)
Quarter: 2025Q2

REPORT INFORMATION
  Report Type: Report from Study
  Country: DE (occurrence: DE)
  Receive Date: 20220103
  Receipt Date: 20250620
  Transmission Date: 20250717
  Serious: Yes (Hospitalization, Other)
  Sender: MYLAN
  Company Number: DE-002147023-NVSC2021DE059273

PATIENT
  Sex: Female

DRUGS (60)
  1. METHOTREXATE [Suspect]
     Active Substance: METHOTREXATE
     Indication: Psoriatic arthropathy
     Dosage: 10 MG, QW
     Dates: start: 20130101
  2. METHOTREXATE [Suspect]
     Active Substance: METHOTREXATE
     Dosage: 10 MG, QW
     Dates: start: 20130101
  3. METHOTREXATE [Suspect]
     Active Substance: METHOTREXATE
     Dosage: 10 MG, QW
     Route: 065
     Dates: start: 20130101
  4. METHOTREXATE [Suspect]
     Active Substance: METHOTREXATE
     Dosage: 10 MG, QW
     Route: 065
     Dates: start: 20130101
  5. METHOTREXATE [Suspect]
     Active Substance: METHOTREXATE
  6. METHOTREXATE [Suspect]
     Active Substance: METHOTREXATE
  7. METHOTREXATE [Suspect]
     Active Substance: METHOTREXATE
     Route: 065
  8. METHOTREXATE [Suspect]
     Active Substance: METHOTREXATE
     Route: 065
  9. METHOTREXATE [Suspect]
     Active Substance: METHOTREXATE
     Dosage: 15 MILLIGRAM, QW
     Dates: start: 20221219
  10. METHOTREXATE [Suspect]
     Active Substance: METHOTREXATE
     Dosage: 15 MILLIGRAM, QW
     Route: 058
     Dates: start: 20221219
  11. METHOTREXATE [Suspect]
     Active Substance: METHOTREXATE
     Dosage: 15 MILLIGRAM, QW
     Dates: start: 20221219
  12. METHOTREXATE [Suspect]
     Active Substance: METHOTREXATE
     Dosage: 15 MILLIGRAM, QW
     Route: 058
     Dates: start: 20221219
  13. ACEMETACIN [Suspect]
     Active Substance: ACEMETACIN
     Indication: Psoriatic arthropathy
     Route: 065
     Dates: start: 20170601, end: 20200306
  14. ACEMETACIN [Suspect]
     Active Substance: ACEMETACIN
     Dates: start: 20170601, end: 20200306
  15. ACEMETACIN [Suspect]
     Active Substance: ACEMETACIN
     Dates: start: 20170601, end: 20200306
  16. ACEMETACIN [Suspect]
     Active Substance: ACEMETACIN
     Route: 065
     Dates: start: 20170601, end: 20200306
  17. ACEMETACIN [Suspect]
     Active Substance: ACEMETACIN
     Dosage: 90 MG, QW
     Route: 065
     Dates: start: 20200415, end: 20201015
  18. ACEMETACIN [Suspect]
     Active Substance: ACEMETACIN
     Dosage: 90 MG, QW
     Dates: start: 20200415, end: 20201015
  19. ACEMETACIN [Suspect]
     Active Substance: ACEMETACIN
     Dosage: 90 MG, QW
     Dates: start: 20200415, end: 20201015
  20. ACEMETACIN [Suspect]
     Active Substance: ACEMETACIN
     Dosage: 90 MG, QW
     Route: 065
     Dates: start: 20200415, end: 20201015
  21. COSENTYX [Suspect]
     Active Substance: SECUKINUMAB
     Indication: Psoriatic arthropathy
     Dosage: 150 MG, QMO
     Dates: start: 20191209
  22. COSENTYX [Suspect]
     Active Substance: SECUKINUMAB
     Dosage: 150 MG, QMO
     Route: 042
     Dates: start: 20191209
  23. COSENTYX [Suspect]
     Active Substance: SECUKINUMAB
     Dosage: 150 MG, QMO
     Route: 042
     Dates: start: 20191209
  24. COSENTYX [Suspect]
     Active Substance: SECUKINUMAB
     Dosage: 150 MG, QMO
     Dates: start: 20191209
  25. ETORICOXIB [Suspect]
     Active Substance: ETORICOXIB
     Indication: Product used for unknown indication
     Route: 065
     Dates: start: 20200307, end: 20200415
  26. ETORICOXIB [Suspect]
     Active Substance: ETORICOXIB
     Dates: start: 20200307, end: 20200415
  27. ETORICOXIB [Suspect]
     Active Substance: ETORICOXIB
     Dates: start: 20200307, end: 20200415
  28. ETORICOXIB [Suspect]
     Active Substance: ETORICOXIB
     Route: 065
     Dates: start: 20200307, end: 20200415
  29. ETORICOXIB [Suspect]
     Active Substance: ETORICOXIB
     Route: 065
  30. ETORICOXIB [Suspect]
     Active Substance: ETORICOXIB
  31. ETORICOXIB [Suspect]
     Active Substance: ETORICOXIB
  32. ETORICOXIB [Suspect]
     Active Substance: ETORICOXIB
     Route: 065
  33. ETORICOXIB [Suspect]
     Active Substance: ETORICOXIB
  34. ETORICOXIB [Suspect]
     Active Substance: ETORICOXIB
  35. ETORICOXIB [Suspect]
     Active Substance: ETORICOXIB
     Route: 065
  36. ETORICOXIB [Suspect]
     Active Substance: ETORICOXIB
     Route: 065
  37. ETORICOXIB [Suspect]
     Active Substance: ETORICOXIB
     Dosage: 60 MILLIGRAM, QD
     Dates: start: 20221114
  38. ETORICOXIB [Suspect]
     Active Substance: ETORICOXIB
     Dosage: 60 MILLIGRAM, QD
     Dates: start: 20221114
  39. ETORICOXIB [Suspect]
     Active Substance: ETORICOXIB
     Dosage: 60 MILLIGRAM, QD
     Route: 065
     Dates: start: 20221114
  40. ETORICOXIB [Suspect]
     Active Substance: ETORICOXIB
     Dosage: 60 MILLIGRAM, QD
     Route: 065
     Dates: start: 20221114
  41. ETORICOXIB [Concomitant]
     Active Substance: ETORICOXIB
     Indication: Product used for unknown indication
     Route: 065
     Dates: start: 20200307, end: 20200415
  42. ETORICOXIB [Concomitant]
     Active Substance: ETORICOXIB
     Dates: start: 20200307, end: 20200415
  43. ETORICOXIB [Concomitant]
     Active Substance: ETORICOXIB
     Dates: start: 20200307, end: 20200415
  44. ETORICOXIB [Concomitant]
     Active Substance: ETORICOXIB
     Route: 065
     Dates: start: 20200307, end: 20200415
  45. ETORICOXIB [Concomitant]
     Active Substance: ETORICOXIB
     Route: 065
  46. ETORICOXIB [Concomitant]
     Active Substance: ETORICOXIB
  47. ETORICOXIB [Concomitant]
     Active Substance: ETORICOXIB
  48. ETORICOXIB [Concomitant]
     Active Substance: ETORICOXIB
     Route: 065
  49. ETORICOXIB [Concomitant]
     Active Substance: ETORICOXIB
     Route: 065
  50. ETORICOXIB [Concomitant]
     Active Substance: ETORICOXIB
     Route: 065
  51. ETORICOXIB [Concomitant]
     Active Substance: ETORICOXIB
  52. ETORICOXIB [Concomitant]
     Active Substance: ETORICOXIB
  53. METAMIZOLE [Concomitant]
     Active Substance: METAMIZOLE
     Indication: Product used for unknown indication
  54. METAMIZOLE [Concomitant]
     Active Substance: METAMIZOLE
     Route: 065
  55. METAMIZOLE [Concomitant]
     Active Substance: METAMIZOLE
     Route: 065
  56. METAMIZOLE [Concomitant]
     Active Substance: METAMIZOLE
  57. MIRTAZAPINE [Concomitant]
     Active Substance: MIRTAZAPINE
     Indication: Product used for unknown indication
  58. MIRTAZAPINE [Concomitant]
     Active Substance: MIRTAZAPINE
     Route: 065
  59. MIRTAZAPINE [Concomitant]
     Active Substance: MIRTAZAPINE
     Route: 065
  60. MIRTAZAPINE [Concomitant]
     Active Substance: MIRTAZAPINE

REACTIONS (19)
  - Fibromyalgia [Recovered/Resolved]
  - Pain [Recovered/Resolved]
  - Psoriatic arthropathy [Recovered/Resolved]
  - Meniscus injury [Recovered/Resolved]
  - Rotator cuff syndrome [Unknown]
  - Hiatus hernia [Unknown]
  - Gastrooesophageal reflux disease [Unknown]
  - Influenza like illness [Unknown]
  - Duodenitis [Unknown]
  - Hip deformity [Unknown]
  - COVID-19 [Unknown]
  - Osteoarthritis [Unknown]
  - Eye inflammation [Unknown]
  - Diarrhoea [Unknown]
  - Cough [Unknown]
  - Gastrointestinal infection [Unknown]
  - Nasopharyngitis [Unknown]
  - Road traffic accident [Unknown]
  - Plantar fasciitis [Unknown]

NARRATIVE: CASE EVENT DATE: 20200430
